FAERS Safety Report 8576961 (Version 2)
Quarter: 2014Q1

REPORT INFORMATION
  Report Type: Spontaneous
  Country: US (occurrence: None)
  Receive Date: 20120323
  Receipt Date: 20130305
  Transmission Date: 20141002
  Serious: Yes (Disabling, Other)
  Sender: FDA-Public Use
  Company Number: 163-21880-11113831

PATIENT
  Age: 83 Year
  Sex: Male
  Weight: 79.4 kg

DRUGS (9)
  1. REVLIMID [Suspect]
     Indication: LYMPHATIC DISORDER
     Dosage: 10 MG, 1 IN 1 D, PO
     Route: 048
     Dates: start: 20110726
  2. COLACE [Concomitant]
  3. VITAMIN B12 [Concomitant]
  4. POTASSIUM CHLORIDE [Concomitant]
  5. LASIX [Concomitant]
  6. FINASTERIDE [Concomitant]
  7. PRILOSEC [Concomitant]
  8. CARVEDILOL (CARVEDILOL) [Concomitant]
  9. GABAPENTIN (GABAPENTIN) [Concomitant]

REACTIONS (3)
  - Haematochezia [None]
  - Deep vein thrombosis [None]
  - Diarrhoea [None]
